FAERS Safety Report 6331782-X (Version None)
Quarter: 2009Q3

REPORT INFORMATION
  Report Type: 
  Country: None (occurrence: None)
  Receive Date: 20090826
  Receipt Date: 20090810
  Transmission Date: 20100115
  Serious: Yes (Life-Threatening, Hospitalization)
  Sender: FDA-Public Use
  Company Number: 361204

PATIENT
  Age: 15 Year
  Sex: Male

DRUGS (1)
  1. TOBRAMYCIN [Suspect]
     Indication: DRUG USE FOR UNKNOWN INDICATION
     Dosage: 4.12 MG/KG, 3 DAY, INTRAVENOUS
     Route: 042

REACTIONS (1)
  - RENAL FAILURE ACUTE [None]
